FAERS Safety Report 19509962 (Version 1)
Quarter: 2021Q3

REPORT INFORMATION
  Report Type: Spontaneous
  Country: US (occurrence: US)
  Receive Date: 20210709
  Receipt Date: 20210709
  Transmission Date: 20211014
  Serious: Yes (Life-Threatening, Hospitalization)
  Sender: FDA-Public Use
  Company Number: US-JNJFOC-20210702924

PATIENT
  Age: 53 Year
  Sex: Female

DRUGS (1)
  1. BENADRYL [Suspect]
     Active Substance: DIPHENHYDRAMINE HYDROCHLORIDE
     Indication: PRODUCT USED FOR UNKNOWN INDICATION
     Dosage: 100 PILLS OF 25 MG
     Route: 048

REACTIONS (3)
  - Status epilepticus [Recovered/Resolved]
  - Overdose [Unknown]
  - Ventricular fibrillation [Recovered/Resolved]
